FAERS Safety Report 7556921-4 (Version None)
Quarter: 2011Q2

REPORT INFORMATION
  Report Type: 
  Country: None (occurrence: None)
  Receive Date: 20110620
  Receipt Date: 20110607
  Transmission Date: 20111010
  Serious: Yes (Other)
  Sender: FDA-Public Use
  Company Number: PHHY2011JP46235

PATIENT
  Sex: Female

DRUGS (3)
  1. TELMISARTAN AND HYDROCHLOROTHIAZIDE [Concomitant]
     Route: 048
  2. RASILEZ [Suspect]
     Route: 048
  3. ENALAPRIL MALEATE [Concomitant]
     Route: 048

REACTIONS (1)
  - INTERSTITIAL LUNG DISEASE [None]
